FAERS Safety Report 6676574-7 (Version None)
Quarter: 2010Q2

REPORT INFORMATION
  Report Type: 
  Country: None (occurrence: None)
  Receive Date: 20100409
  Receipt Date: 20100409
  Transmission Date: 20101027
  Serious: No
  Sender: FDA-Public Use
  Company Number: None

PATIENT
  Sex: Female
  Weight: 90.7194 kg

DRUGS (3)
  1. DRISDOL [Suspect]
     Indication: VITAMIN K DEFICIENCY
     Dosage: 50,000 IU TWICE WEEKLY ORAL
     Route: 048
  2. VASOTEC [Concomitant]
  3. TYLENOL-500 [Concomitant]

REACTIONS (8)
  - ARTHRALGIA [None]
  - ASTHENIA [None]
  - BALANCE DISORDER [None]
  - GAIT DISTURBANCE [None]
  - INADEQUATE ANALGESIA [None]
  - MIDDLE INSOMNIA [None]
  - PAIN [None]
  - PAIN IN EXTREMITY [None]
